FAERS Safety Report 5229992-8 (Version None)
Quarter: 2007Q1

REPORT INFORMATION
  Report Type: 
  Country: None (occurrence: None)
  Receive Date: 20070206
  Receipt Date: 20070126
  Transmission Date: 20070707
  Serious: Yes (Death)
  Sender: FDA-Public Use
  Company Number: US-PURDUE-USA_2006_0025896

PATIENT
  Age: 35 Year
  Sex: Female
  Weight: 49 kg

DRUGS (7)
  1. PERCOCET [Concomitant]
     Indication: DRUG USE FOR UNKNOWN INDICATION
     Dosage: 10 MG, Q4- 6H
  2. SOMA [Concomitant]
     Indication: DRUG USE FOR UNKNOWN INDICATION
     Dosage: 350 UNK, BID
  3. XANAX [Concomitant]
     Dosage: 1 MG, HS
  4. ATIVAN [Concomitant]
     Dosage: 1 MG, HS
  5. MIRTAZAPINE [Suspect]
     Indication: DRUG USE FOR UNKNOWN INDICATION
  6. ETHANOL [Suspect]
     Indication: DRUG USE FOR UNKNOWN INDICATION
  7. OXYCONTIN [Suspect]
     Indication: BACK PAIN
     Dosage: 40 MG, Q12H
     Route: 048

REACTIONS (1)
  - INTENTIONAL OVERDOSE [None]
